FAERS Safety Report 10027319 (Version 2)
Quarter: 2014Q3

REPORT INFORMATION
  Report Type: Report from Study
  Country: US (occurrence: US)
  Receive Date: 20140321
  Receipt Date: 20140813
  Transmission Date: 20150326
  Serious: Yes (Other)
  Sender: FDA-Public Use
  Company Number: US-ASTELLAS-2014US002718

PATIENT
  Age: 72 Year
  Sex: Female

DRUGS (5)
  1. ERLOTINIB [Suspect]
     Active Substance: ERLOTINIB
     Route: 048
     Dates: start: 201212
  2. MYLANTA                            /00036701/ [Concomitant]
     Indication: REFLUX GASTRITIS
     Route: 065
  3. VITAMIN D3 [Concomitant]
     Active Substance: CHOLECALCIFEROL
     Indication: VITAMIN D DECREASED
     Route: 065
  4. ANALGESICS [Concomitant]
     Active Substance: UNSPECIFIED INGREDIENT
     Indication: PAIN
     Route: 065
  5. ERLOTINIB [Suspect]
     Active Substance: ERLOTINIB
     Indication: NON-SMALL CELL LUNG CANCER
     Route: 048
     Dates: start: 20121228

REACTIONS (19)
  - Diarrhoea [Not Recovered/Not Resolved]
  - Tongue eruption [Not Recovered/Not Resolved]
  - Hair texture abnormal [Unknown]
  - Conjunctivitis [Unknown]
  - Eye irritation [Not Recovered/Not Resolved]
  - Alopecia [Not Recovered/Not Resolved]
  - Pruritus [Not Recovered/Not Resolved]
  - Lip swelling [Not Recovered/Not Resolved]
  - Nasal dryness [Not Recovered/Not Resolved]
  - Glossodynia [Unknown]
  - Hair texture abnormal [Not Recovered/Not Resolved]
  - Eye discharge [Unknown]
  - Rash [Recovering/Resolving]
  - Skin burning sensation [Recovered/Resolved]
  - Acne [Not Recovered/Not Resolved]
  - Incorrect dose administered [Unknown]
  - Malignant neoplasm progression [Not Recovered/Not Resolved]
  - Madarosis [Not Recovered/Not Resolved]
  - Eye irritation [Not Recovered/Not Resolved]

NARRATIVE: CASE EVENT DATE: 201301
